FAERS Safety Report 20887162 (Version 1)
Quarter: 2022Q2

REPORT INFORMATION
  Report Type: Spontaneous
  Country: US (occurrence: US)
  Receive Date: 20220528
  Receipt Date: 20220528
  Transmission Date: 20220721
  Serious: No
  Sender: FDA-Public Use
  Company Number: US-BRISTOL-MYERS SQUIBB COMPANY-2022-042781

PATIENT
  Age: 71 Year
  Sex: Female
  Weight: 55.34 kg

DRUGS (6)
  1. REVLIMID [Suspect]
     Active Substance: LENALIDOMIDE
     Indication: Plasma cell myeloma
     Dosage: DAILY ?21 DAYS
     Route: 048
     Dates: start: 20220501
  2. DECADRON [Concomitant]
     Active Substance: DEXAMETHASONE
  3. OXYCODONE [Concomitant]
     Active Substance: OXYCODONE
  4. PAXIL [Concomitant]
     Active Substance: PAROXETINE HYDROCHLORIDE
  5. VELCADE [Concomitant]
     Active Substance: BORTEZOMIB
  6. ONDANSETRON [Concomitant]
     Active Substance: ONDANSETRON

REACTIONS (3)
  - Nausea [Unknown]
  - Vomiting [Unknown]
  - Diarrhoea [Unknown]
